FAERS Safety Report 13154118 (Version 1)
Quarter: 2017Q1

REPORT INFORMATION
  Report Type: Spontaneous
  Country: US (occurrence: US)
  Receive Date: 20170126
  Receipt Date: 20170126
  Transmission Date: 20170428
  Serious: Yes (Death)
  Sender: FDA-Public Use
  Company Number: None

PATIENT
  Age: 89 Year
  Sex: Male
  Weight: 72.58 kg

DRUGS (2)
  1. CUBICIN [Suspect]
     Active Substance: DAPTOMYCIN
     Indication: OSTEOMYELITIS
     Dosage: ROUTE - IV BY PIC LINE
     Route: 042
     Dates: start: 20161028, end: 20161108
  2. TYLENOL [Concomitant]
     Active Substance: ACETAMINOPHEN

REACTIONS (4)
  - Asthenia [None]
  - Fall [None]
  - Cardiogenic shock [None]
  - Muscle atrophy [None]

NARRATIVE: CASE EVENT DATE: 20161108
